FAERS Safety Report 7472219-7 (Version None)
Quarter: 2011Q2

REPORT INFORMATION
  Report Type: 
  Country: None (occurrence: None)
  Receive Date: 20110502
  Receipt Date: 20110419
  Transmission Date: 20111010
  Serious: Yes (Other)
  Sender: FDA-Public Use
  Company Number: 1000018805

PATIENT
  Age: 17 Year
  Weight: 63 kg

DRUGS (1)
  1. ESCITALOPRAM [Suspect]
     Indication: DEPRESSION
     Dosage: 10 MG (10 MG, 1  IN 1 D), ORAL
     Route: 048
     Dates: start: 20100902

REACTIONS (2)
  - OFF LABEL USE [None]
  - AMENORRHOEA [None]
